FAERS Safety Report 14350121 (Version 3)
Quarter: 2018Q1

REPORT INFORMATION
  Report Type: Spontaneous
  Country: DE (occurrence: DE)
  Receive Date: 20180104
  Receipt Date: 20180309
  Transmission Date: 20180509
  Serious: Yes (Other)
  Sender: FDA-Public Use
  Company Number: DE-JNJFOC-20180100430

PATIENT
  Age: 40 Year
  Sex: Female

DRUGS (3)
  1. INFLIXIMAB, RECOMBINANT [Suspect]
     Active Substance: INFLIXIMAB
     Indication: COLITIS ULCERATIVE
     Route: 042
     Dates: end: 201709
  2. MESALAZIN [Concomitant]
     Active Substance: MESALAMINE
     Route: 065
  3. AZATHIOPRIN [Concomitant]
     Active Substance: AZATHIOPRINE
     Route: 065

REACTIONS (10)
  - Urine analysis abnormal [Recovering/Resolving]
  - Dry skin [Not Recovered/Not Resolved]
  - Butterfly rash [Recovering/Resolving]
  - Dermatitis [Not Recovered/Not Resolved]
  - Erythema [Recovering/Resolving]
  - Skin disorder [Not Recovered/Not Resolved]
  - Lupus-like syndrome [Recovering/Resolving]
  - Skin exfoliation [Not Recovered/Not Resolved]
  - Erythema [Not Recovered/Not Resolved]
  - Skin burning sensation [Recovering/Resolving]

NARRATIVE: CASE EVENT DATE: 201708
